FAERS Safety Report 5481100-4 (Version None)
Quarter: 2007Q4

REPORT INFORMATION
  Report Type: 
  Country: None (occurrence: None)
  Receive Date: 20071003
  Receipt Date: 20070918
  Transmission Date: 20080405
  Serious: Yes (Hospitalization)
  Sender: FDA-Public Use
  Company Number: 100#03#2007-03806

PATIENT
  Age: 76 Year
  Sex: Female

DRUGS (7)
  1. TORASEMMEPHA (TORASEMIDE) (TORASEMIDE) [Suspect]
     Indication: DRUG USE FOR UNKNOWN INDICATION
     Dosage: 50 MG (QD) ORAL
     Route: 048
     Dates: end: 20070809
  2. MIANSERIN (MIANSERIN) (MIANSERIN) [Suspect]
     Indication: DRUG USE FOR UNKNOWN INDICATION
     Dosage: 30 MG (QD) ORAL
     Route: 048
     Dates: end: 20070813
  3. CORDARONE (AMIODARONE HYDROCHLORIDEE) (AMIIODARONE) [Concomitant]
  4. LASIX [Concomitant]
  5. BELOC (METOPROLOL TARTRATE) (METOPROLOL) [Concomitant]
  6. ALDACTONE [Concomitant]
  7. SOTALOL (SOTALOL HYDROCHLORIDE) (SOTALOL) [Concomitant]

REACTIONS (4)
  - CARDIAC FAILURE ACUTE [None]
  - CARDIAC FAILURE CONGESTIVE [None]
  - CONDITION AGGRAVATED [None]
  - INAPPROPRIATE ANTIDIURETIC HORMONE SECRETION [None]
